FAERS Safety Report 18541219 (Version 2)
Quarter: 2021Q1

REPORT INFORMATION
  Report Type: Spontaneous
  Country: US (occurrence: US)
  Receive Date: 20201124
  Receipt Date: 20210131
  Transmission Date: 20210419
  Serious: Yes (Death, Hospitalization, Other)
  Sender: FDA-Public Use
  Company Number: US-PURDUE-USA-2020-0177870

PATIENT
  Age: 85 Year
  Sex: Male

DRUGS (9)
  1. TRAMADOL. [Suspect]
     Active Substance: TRAMADOL
     Indication: HEADACHE
     Dosage: UNKNOWN
     Route: 048
  2. CODEINE [Suspect]
     Active Substance: CODEINE
     Indication: HEADACHE
     Dosage: UNKNOWN
     Route: 065
  3. OXYCONTIN [Suspect]
     Active Substance: OXYCODONE HYDROCHLORIDE
     Indication: HEADACHE
     Dosage: UNKNOWN
     Route: 048
  4. HYDROCODONE BITARTRATE AND ACETAMINOPHEN [Suspect]
     Active Substance: ACETAMINOPHEN\HYDROCODONE BITARTRATE
     Indication: HEADACHE
     Dosage: UNKNOWN
     Route: 048
  5. IMITREX [Suspect]
     Active Substance: SUMATRIPTAN SUCCINATE
     Indication: HEADACHE
     Dosage: UNKNOWN
     Route: 042
  6. HYDROMORPHONE TABLETS [Suspect]
     Active Substance: HYDROMORPHONE
     Indication: HEADACHE
     Dosage: UNKNOWN
     Route: 048
  7. DARVOCET [Suspect]
     Active Substance: ACETAMINOPHEN\PROPOXYPHENE HYDROCHLORIDE
     Indication: HEADACHE
     Dosage: UNKNOWN
     Route: 065
  8. OXYCODONE/ ACETAMINOPHEN TABLETS [Suspect]
     Active Substance: ACETAMINOPHEN\OXYCODONE HYDROCHLORIDE
     Indication: HEADACHE
     Dosage: UNKNOWN
     Route: 048
  9. PERCOCET                           /00446701/ [Suspect]
     Active Substance: ACETAMINOPHEN\OXYCODONE HYDROCHLORIDE\OXYCODONE TEREPHTHALATE
     Indication: HEADACHE
     Dosage: UNKNOWN
     Route: 065

REACTIONS (10)
  - Head injury [Unknown]
  - Acute kidney injury [Fatal]
  - Pelvic fracture [Unknown]
  - Substance abuse [Unknown]
  - Drug abuse [Unknown]
  - Cardiomyopathy [Fatal]
  - Pain [Unknown]
  - Drug dependence [Unknown]
  - Fall [Unknown]
  - Mood altered [Unknown]

NARRATIVE: CASE EVENT DATE: 20060604
